FAERS Safety Report 24343782 (Version 2)
Quarter: 2025Q2

REPORT INFORMATION
  Report Type: Spontaneous
  Country: SE (occurrence: SE)
  Receive Date: 20240920
  Receipt Date: 20250411
  Transmission Date: 20250717
  Serious: Yes (Other)
  Sender: RANBAXY
  Company Number: SE-SUN PHARMACEUTICAL INDUSTRIES LTD-2024RR-468943

PATIENT
  Age: 50 Year
  Sex: Female

DRUGS (1)
  1. SERTRALINE [Suspect]
     Active Substance: SERTRALINE HYDROCHLORIDE
     Indication: Product used for unknown indication
     Dosage: 50 MILLIGRAM, DAILY
     Route: 065
     Dates: start: 2018

REACTIONS (4)
  - Thrombocytopenia [Recovered/Resolved]
  - Dizziness [Recovered/Resolved]
  - Leukopenia [Recovered/Resolved]
  - Palpitations [Recovered/Resolved]

NARRATIVE: CASE EVENT DATE: 20240530
